FAERS Safety Report 6093215-0 (Version None)
Quarter: 2009Q1

REPORT INFORMATION
  Report Type: 
  Country: None (occurrence: None)
  Receive Date: 20090226
  Receipt Date: 20090224
  Transmission Date: 20090719
  Serious: Yes (Hospitalization)
  Sender: FDA-Public Use
  Company Number: IT-BRISTOL-MYERS SQUIBB COMPANY-14494348

PATIENT
  Age: 86 Year
  Sex: Male

DRUGS (7)
  1. COUMADIN [Suspect]
     Indication: ATRIAL FIBRILLATION
     Dosage: INTERRUPTED ON 12NOV07
     Route: 048
     Dates: start: 20071101
  2. TICLID [Suspect]
     Indication: ATRIAL FIBRILLATION
     Dosage: INTERRUPTED ON 12NOV07
     Route: 048
     Dates: start: 20071101
  3. EUTIROX [Concomitant]
     Indication: HYPOTHYROIDISM
     Route: 048
     Dates: start: 20071101, end: 20071112
  4. FINASTERIDE [Concomitant]
     Indication: BENIGN PROSTATIC HYPERPLASIA
     Route: 048
     Dates: start: 20071101, end: 20071101
  5. CORDARONE [Concomitant]
     Indication: ATRIAL FIBRILLATION
     Route: 048
     Dates: start: 20071101, end: 20071112
  6. ISOSORBIDE [Concomitant]
     Dosage: FORM=LONG RELEASE TABS
     Route: 048
  7. TACHIPIRINA [Concomitant]
     Dosage: FORM=TABS
     Route: 048

REACTIONS (4)
  - CEREBRAL HAEMORRHAGE [None]
  - FALL [None]
  - HEAD INJURY [None]
  - JOINT INJURY [None]
